FAERS Safety Report 5751826-3 (Version None)
Quarter: 2008Q2

REPORT INFORMATION
  Report Type: 
  Country: None (occurrence: None)
  Receive Date: 20080529
  Receipt Date: 20080522
  Transmission Date: 20081010
  Serious: Yes (Other)
  Sender: FDA-Public Use
  Company Number: US-WYE-H03020208

PATIENT
  Sex: Male
  Weight: 16.8 kg

DRUGS (1)
  1. ROBITUSSIN PEDIATRIC COUGH AND COLD NIGHTTIME [Suspect]
     Indication: NASOPHARYNGITIS
     Dosage: 1/2 TSP ONCE AT BEDTIME
     Route: 048
     Dates: start: 20080302, end: 20080303

REACTIONS (4)
  - GENERALISED OEDEMA [None]
  - HYPERSENSITIVITY [None]
  - RASH MACULO-PAPULAR [None]
  - SWELLING FACE [None]
